FAERS Safety Report 18892850 (Version 2)
Quarter: 2021Q1

REPORT INFORMATION
  Report Type: Spontaneous
  Country: JP (occurrence: JP)
  Receive Date: 20210215
  Receipt Date: 20210220
  Transmission Date: 20210420
  Serious: Yes (Hospitalization, Other)
  Sender: FDA-Public Use
  Company Number: JP-AXELLIA-003676

PATIENT
  Age: 55 Year
  Sex: Male
  Weight: 61.7 kg

DRUGS (6)
  1. DEXAMETHASONE. [Concomitant]
     Active Substance: DEXAMETHASONE
     Indication: PLASMACYTOMA
  2. CEFEPIME [Suspect]
     Active Substance: CEFEPIME HYDROCHLORIDE
     Dosage: DE?ESCALATION FROM CFPM TO CEFAZOLIN (CEZ) WAS PERFORMED ON DAY 16
  3. CARFILZOMIB [Suspect]
     Active Substance: CARFILZOMIB
     Indication: PLASMACYTOMA
  4. VANCOMYCIN [Suspect]
     Active Substance: VANCOMYCIN
  5. CEFEPIME [Suspect]
     Active Substance: CEFEPIME HYDROCHLORIDE
     Dosage: ON DAY 21 AND DIDN^T DECREASE DESPITE REPEATED ESCALATION OF ANTIBIOTICS (FROM CEZ TO CFPM)
  6. LENALIDOMIDE [Suspect]
     Active Substance: LENALIDOMIDE
     Indication: PLASMACYTOMA

REACTIONS (7)
  - Toxicity to various agents [Unknown]
  - Acute kidney injury [Recovering/Resolving]
  - Nephropathy [Recovering/Resolving]
  - Pleural effusion [Unknown]
  - Overdose [Unknown]
  - Renal impairment [Recovering/Resolving]
  - Hypoxia [Unknown]
